FAERS Safety Report 13599916 (Version 1)
Quarter: 2017Q2

REPORT INFORMATION
  Report Type: Spontaneous
  Country: US (occurrence: US)
  Receive Date: 20170531
  Receipt Date: 20170531
  Transmission Date: 20170830
  Serious: Yes (Hospitalization)
  Sender: FDA-Public Use
  Company Number: None

PATIENT
  Age: 62 Year
  Sex: Female

DRUGS (9)
  1. VITAMIN E [Concomitant]
     Active Substance: .ALPHA.-TOCOPHEROL
  2. VITAMIN D [Concomitant]
     Active Substance: CHOLECALCIFEROL
  3. VITAMIN B [Concomitant]
     Active Substance: VITAMIN B
  4. DIOVAN [Concomitant]
     Active Substance: VALSARTAN
  5. REBIF [Suspect]
     Active Substance: INTERFERON BETA-1A
     Indication: MULTIPLE SCLEROSIS
     Route: 058
     Dates: start: 20140625
  6. TEGRETOL [Concomitant]
     Active Substance: CARBAMAZEPINE
  7. BACLOFEN. [Concomitant]
     Active Substance: BACLOFEN
  8. DIAZEPAM. [Concomitant]
     Active Substance: DIAZEPAM
  9. HYDROCO/APAP [Concomitant]
     Active Substance: ACETAMINOPHEN\HYDROCODONE

REACTIONS (5)
  - Therapy non-responder [None]
  - Fall [None]
  - Head injury [None]
  - Pneumonia [None]
  - Transient ischaemic attack [None]

NARRATIVE: CASE EVENT DATE: 20170528
